FAERS Safety Report 7937793-2 (Version None)
Quarter: 2011Q4

REPORT INFORMATION
  Report Type: 
  Country: None (occurrence: None)
  Receive Date: 20111123
  Receipt Date: 20111117
  Transmission Date: 20120403
  Serious: Yes (Hospitalization)
  Sender: FDA-Public Use
  Company Number: US-GILEAD-2011-0044603

PATIENT
  Age: 46 Year
  Sex: Male

DRUGS (2)
  1. UVEDOSE [Concomitant]
     Indication: VITAMIN D DEFICIENCY
  2. EFAVIRENZ/EMTRICITABINE/TENOFOVIR DISOPROXIL FUMARATE [Suspect]
     Indication: HIV INFECTION
     Dosage: 1 DF, QD
     Route: 048
     Dates: start: 20100817

REACTIONS (1)
  - CHOLELITHIASIS MIGRATION [None]
